FAERS Safety Report 9270540 (Version 2)
Quarter: 2013Q2

REPORT INFORMATION
  Report Type: Report from Study
  Country: DE (occurrence: DE)
  Receive Date: 20130503
  Receipt Date: 20130503
  Transmission Date: 20140414
  Serious: Yes (Hospitalization)
  Sender: FDA-Public Use
  Company Number: DE-TEVA-353878GER

PATIENT
  Age: 52 Year
  Sex: Female
  Weight: 78 kg

DRUGS (6)
  1. MYOCET [Suspect]
     Indication: BREAST CANCER
     Route: 042
     Dates: start: 20120606, end: 20120808
  2. PACLITAXEL [Suspect]
     Indication: BREAST CANCER
     Route: 042
     Dates: start: 20120606, end: 20120808
  3. LAPATINIB [Suspect]
     Indication: BREAST CANCER
     Dosage: 750 MILLIGRAM DAILY;
     Route: 048
     Dates: start: 20120607, end: 20120810
  4. HERCEPTIN [Suspect]
     Indication: BREAST CANCER
     Route: 042
     Dates: start: 20120608, end: 20120725
  5. DEXAMETHASONE [Concomitant]
     Dosage: 8 MILLIGRAM DAILY;
     Dates: start: 20120809, end: 20120810
  6. GRANOCYTE [Concomitant]
     Dosage: 34000000 IU (INTERNATIONAL UNIT) DAILY;
     Dates: start: 20120809, end: 20120813

REACTIONS (2)
  - Alveolitis [Recovering/Resolving]
  - Organising pneumonia [Recovering/Resolving]
